FAERS Safety Report 10266057 (Version 1)
Quarter: 2014Q2

REPORT INFORMATION
  Report Type: Report from Study
  Country: US (occurrence: US)
  Receive Date: 20140627
  Receipt Date: 20140627
  Transmission Date: 20141212
  Serious: Yes (Death, Other)
  Sender: FDA-Public Use
  Company Number: US-ASTRAZENECA-2014SE46237

PATIENT
  Age: 85 Year
  Sex: Male
  Weight: 115.7 kg

DRUGS (21)
  1. TOPROL- XL [Suspect]
     Route: 048
  2. RHINOCORT AQUA [Suspect]
     Dosage: 32 MG 1 SPRAY DAILY IN EACH NOSTRIL
     Route: 045
  3. MORPHINE SULFATE [Suspect]
     Dosage: 20 MG-5 ML, 2.5 ML PRN
     Route: 048
  4. MORPHINE SULFATE [Suspect]
     Dosage: 100 MG-5 ML, PRN
     Route: 048
  5. ATORVASTATIN [Concomitant]
     Indication: HYPERLIPIDAEMIA
  6. ATROPINE [Concomitant]
     Dosage: DAILY
  7. CELEXA [Concomitant]
  8. CLONAZEPAM [Concomitant]
     Dosage: 0.5 MG BID PRN
  9. COMBIVENT [Concomitant]
     Dosage: 18 MCG -103 MCG, 2 PUFFS QID PRN
  10. COMBIVENT [Concomitant]
     Dosage: RESPIMAT, 20 MCG - 100 MCG, PRN
  11. FUROSEMIDE [Concomitant]
  12. IPRATROPIUM ALBUTEROL [Concomitant]
     Dosage: 0.5 MG - 3 MG
  13. LETAIRIS [Concomitant]
     Route: 048
  14. PREDNISONE [Concomitant]
  15. REVATIO [Concomitant]
  16. SENNA LAX [Concomitant]
  17. TYLENOL PM [Concomitant]
     Dosage: 25-500 MG, 2 TABS HS
  18. VENTOLIN HFA [Concomitant]
     Dosage: PRN
  19. WARFARIN [Concomitant]
  20. OXYGEN [Concomitant]
     Dosage: 24 HOURS, CONT
  21. OXYGEN [Concomitant]
     Dosage: VIA BIPAP, HS

REACTIONS (9)
  - Death [Fatal]
  - Essential hypertension [Unknown]
  - Pulmonary hypertension [Unknown]
  - Lung disorder [Unknown]
  - Gastrointestinal haemorrhage [Unknown]
  - Congestive cardiomyopathy [Unknown]
  - Chronic obstructive pulmonary disease [Unknown]
  - Sleep apnoea syndrome [Unknown]
  - Atrial fibrillation [Unknown]
